FAERS Safety Report 7162639-2 (Version None)
Quarter: 2010Q4

REPORT INFORMATION
  Report Type: 
  Country: None (occurrence: None)
  Receive Date: 20101215
  Receipt Date: 20091214
  Transmission Date: 20110411
  Serious: Yes (Other)
  Sender: FDA-Public Use
  Company Number: FR-PFIZER INC-2009271463

PATIENT
  Age: 51 Year
  Sex: Male

DRUGS (1)
  1. LYRICA [Suspect]
     Indication: NEURALGIA
     Dosage: 150 MG, 1X/DAY
     Dates: start: 20090301, end: 20090601

REACTIONS (3)
  - BALANCE DISORDER [None]
  - PARAESTHESIA ORAL [None]
  - PSYCHOMOTOR SKILLS IMPAIRED [None]
